FAERS Safety Report 11755686 (Version 1)
Quarter: 2015Q4

REPORT INFORMATION
  Report Type: Spontaneous
  Country: PL (occurrence: PL)
  Receive Date: 20151119
  Receipt Date: 20151119
  Transmission Date: 20160304
  Serious: Yes (Other)
  Sender: FDA-Public Use
  Company Number: PL-BAYER-2015-463653

PATIENT
  Age: 63 Year
  Sex: Male

DRUGS (7)
  1. LINEZOLID. [Suspect]
     Active Substance: LINEZOLID
     Indication: PURULENT PERICARDITIS
  2. CIPROFLOXACIN. [Suspect]
     Active Substance: CIPROFLOXACIN
     Indication: ARTHRITIS BACTERIAL
  3. CIPROFLOXACIN. [Suspect]
     Active Substance: CIPROFLOXACIN
     Indication: PURULENT PERICARDITIS
  4. CEFAZOLIN [Suspect]
     Active Substance: CEFAZOLIN
     Indication: ARTHRITIS BACTERIAL
  5. METRONIDAZOLE. [Suspect]
     Active Substance: METRONIDAZOLE
     Indication: ARTHRITIS BACTERIAL
  6. PIPERACILLIN SODIUM W/TAZOBACTAM [Suspect]
     Active Substance: PIPERACILLIN SODIUM\TAZOBACTAM SODIUM
     Indication: PURULENT PERICARDITIS
  7. MEROPENEM. [Suspect]
     Active Substance: MEROPENEM
     Indication: PURULENT PERICARDITIS

REACTIONS (3)
  - Drug ineffective for unapproved indication [None]
  - Off label use [None]
  - Pericarditis constrictive [None]
